FAERS Safety Report 8458709-9 (Version None)
Quarter: 2012Q2

REPORT INFORMATION
  Report Type: 
  Country: None (occurrence: None)
  Receive Date: 20120622
  Receipt Date: 20120618
  Transmission Date: 20120825
  Serious: Yes (Hospitalization, Congenital Anomaly, Other)
  Sender: FDA-Public Use
  Company Number: US-PFIZER INC-2010092589

PATIENT
  Sex: Male
  Weight: 3 kg

DRUGS (11)
  1. PRILOSEC [Concomitant]
     Dosage: UNK
     Route: 064
  2. REGLAN [Concomitant]
     Dosage: UNK
     Route: 064
  3. ZOLOFT [Suspect]
     Indication: DEPRESSED MOOD
     Dosage: 50 MG, ONE TABLET DAILY
     Route: 064
  4. ZITHROMAX [Concomitant]
     Indication: EAR INFECTION
     Dosage: UNK
     Route: 064
     Dates: start: 20040920
  5. ZOLOFT [Suspect]
     Dosage: 100 MG, ONE TABLET DAILY
     Route: 064
  6. ENALAPRIL [Concomitant]
     Dosage: UNK
     Route: 064
  7. PROTONIX [Concomitant]
     Dosage: UNK
     Route: 064
  8. PREVACID [Concomitant]
     Dosage: UNK
     Route: 064
  9. ASPIRIN [Concomitant]
     Dosage: HALF TABLET ONCE DAILY
     Route: 064
  10. MULTI-VITAMINS [Concomitant]
     Dosage: UNK
     Route: 064
  11. ACETAMINOPHEN [Concomitant]
     Dosage: 650 MG, EVERY 4 TO 6 TIMES WHEN NECESSARY
     Route: 064
     Dates: start: 20040712

REACTIONS (30)
  - HEART DISEASE CONGENITAL [None]
  - SUBDURAL HAEMORRHAGE [None]
  - DYSPNOEA [None]
  - TACHYPNOEA [None]
  - OTITIS MEDIA ACUTE [None]
  - FOETAL EXPOSURE DURING PREGNANCY [None]
  - TRICUSPID VALVE INCOMPETENCE [None]
  - FAILURE TO THRIVE [None]
  - HEPATOMEGALY [None]
  - HYPOPLASTIC LEFT HEART SYNDROME [None]
  - ARTERIAL STENOSIS [None]
  - COGNITIVE DISORDER [None]
  - DEVELOPMENTAL DELAY [None]
  - PULMONARY VASCULAR DISORDER [None]
  - INTERSTITIAL LUNG DISEASE [None]
  - BRONCHIAL HYPERREACTIVITY [None]
  - CARDIOMEGALY [None]
  - RESPIRATORY MUSCLE WEAKNESS [None]
  - PNEUMONIA [None]
  - CYANOSIS [None]
  - VIRAL INFECTION [None]
  - ATRIAL SEPTAL DEFECT [None]
  - RESPIRATORY DISTRESS [None]
  - MOTOR DYSFUNCTION [None]
  - MENTAL IMPAIRMENT [None]
  - BULIMIA NERVOSA [None]
  - PULMONARY HYPERTENSION [None]
  - UPPER RESPIRATORY TRACT INFECTION [None]
  - HYPOXIC-ISCHAEMIC ENCEPHALOPATHY [None]
  - SINUSITIS [None]
